FAERS Safety Report 6181678-1 (Version None)
Quarter: 2009Q2

REPORT INFORMATION
  Report Type: 
  Country: None (occurrence: None)
  Receive Date: 20090506
  Receipt Date: 20090428
  Transmission Date: 20091009
  Serious: Yes (Other)
  Sender: FDA-Public Use
  Company Number: US-CELGENEUS-163-21880-09021100

PATIENT
  Sex: Female

DRUGS (3)
  1. REVLIMID [Suspect]
     Route: 048
     Dates: start: 20090126, end: 20090223
  2. REVLIMID [Suspect]
     Dosage: 10MG OR 5MG
     Route: 048
     Dates: start: 20081101, end: 20090101
  3. REVLIMID [Suspect]
     Route: 048
     Dates: start: 20071127, end: 20071201

REACTIONS (4)
  - FISTULA [None]
  - HEPATITIS C [None]
  - NEUTROPENIA [None]
  - STAPHYLOCOCCAL INFECTION [None]
